FAERS Safety Report 8046427-0 (Version None)
Quarter: 2012Q1

REPORT INFORMATION
  Report Type: 
  Country: None (occurrence: None)
  Receive Date: 20120113
  Receipt Date: 20120104
  Transmission Date: 20120608
  Serious: Yes (Hospitalization)
  Sender: FDA-Public Use
  Company Number: IT-ASTRAZENECA-2012SE00688

PATIENT
  Age: 28961 Day
  Sex: Male

DRUGS (3)
  1. ROSUVASTATIN [Suspect]
     Indication: HYPERCHOLESTEROLAEMIA
     Route: 048
     Dates: start: 20110418, end: 20111125
  2. ENOXAPARIN SODIUM [Concomitant]
     Dosage: INJECTABLE SOLUTION, 6 0.4 ML PRE-FILLED SYRINGES
     Route: 058
  3. ATENOLOL [Concomitant]

REACTIONS (1)
  - PANCREATIC ENZYMES INCREASED [None]
